FAERS Safety Report 9254961 (Version 3)
Quarter: 2013Q3

REPORT INFORMATION
  Report Type: Spontaneous
  Country: HU (occurrence: HU)
  Receive Date: 20130425
  Receipt Date: 20130716
  Transmission Date: 20140515
  Serious: Yes (Other)
  Sender: FDA-Public Use
  Company Number: HU-UCBSA-083769

PATIENT
  Sex: Female
  Weight: 50 kg

DRUGS (6)
  1. CIMZIA [Suspect]
     Indication: RHEUMATOID ARTHRITIS
     Dosage: 32 DOSES RECEIVED
     Route: 058
     Dates: start: 20110905, end: 20121206
  2. QUAMATEL [Concomitant]
     Indication: PROPHYLAXIS
     Dosage: UNITS OF DOSE AND FORM UNKNOWN.
     Route: 048
     Dates: start: 2007
  3. MEDROL [Concomitant]
     Indication: RHEUMATOID ARTHRITIS
     Dates: start: 2002
  4. D3 VITAMIN [Concomitant]
     Indication: OSTEOPOROSIS
     Dates: start: 2011
  5. PERINDOPRIL, INDAPAMIDE [Concomitant]
     Indication: HYPERTENSION
     Dosage: 5 MG/ 1.25 MG, ONCE A DAY
     Dates: start: 201209
  6. ROSUVASTATIN [Concomitant]
     Indication: HYPERCHOLESTEROLAEMIA
     Dates: start: 201209

REACTIONS (2)
  - Herpes zoster [Recovered/Resolved]
  - Skin bacterial infection [Recovered/Resolved]
